FAERS Safety Report 14278840 (Version 5)
Quarter: 2018Q2

REPORT INFORMATION
  Report Type: Spontaneous
  Country: PL (occurrence: PL)
  Receive Date: 20171212
  Receipt Date: 20180423
  Transmission Date: 20180711
  Serious: Yes (Life-Threatening, Hospitalization, Other)
  Sender: FDA-Public Use
  Company Number: PL-SA-2017SA245740

PATIENT
  Age: 72 Year
  Sex: Male

DRUGS (8)
  1. PANTOPRAZOLE [Suspect]
     Active Substance: PANTOPRAZOLE
     Route: 048
  2. CLOPIDOGREL BISULFATE. [Interacting]
     Active Substance: CLOPIDOGREL BISULFATE
     Indication: PREOPERATIVE CARE
     Dosage: DOSAGE TEXT- LOADING DOSE 600 MG
     Route: 048
  3. PANTOPRAZOLE [Suspect]
     Active Substance: PANTOPRAZOLE
     Route: 065
  4. CLOPIDOGREL BISULFATE. [Suspect]
     Active Substance: CLOPIDOGREL BISULFATE
     Indication: ACUTE CORONARY SYNDROME
     Dosage: DOSAGE TEXT- LOADING DOSE 600 MG
     Route: 048
  5. HEPARIN [Interacting]
     Active Substance: HEPARIN SODIUM
     Indication: ACUTE CORONARY SYNDROME
     Dosage: UNFRACTIONATED HEPARIN
     Route: 042
  6. HEPARIN [Interacting]
     Active Substance: HEPARIN SODIUM
     Indication: PREOPERATIVE CARE
     Dosage: UNFRACTIONATED HEPARIN
     Route: 042
  7. ACETYLSALICYLIC ACID [Interacting]
     Active Substance: ASPIRIN
     Indication: ACUTE CORONARY SYNDROME
     Route: 048
  8. ACETYLSALICYLIC ACID [Interacting]
     Active Substance: ASPIRIN
     Indication: PREOPERATIVE CARE
     Route: 048

REACTIONS (8)
  - Mucosal inflammation [Recovered/Resolved]
  - Haematemesis [Recovered/Resolved]
  - Haemoglobin decreased [Unknown]
  - Gastritis haemorrhagic [Recovered/Resolved]
  - Gastrointestinal disorder [Recovered/Resolved]
  - Upper gastrointestinal haemorrhage [Recovered/Resolved]
  - Contraindicated product administered [Unknown]
  - Labelled drug-drug interaction medication error [Unknown]
